FAERS Safety Report 5933774-9 (Version None)
Quarter: 2008Q4

REPORT INFORMATION
  Report Type: 
  Country: None (occurrence: None)
  Receive Date: 20081029
  Receipt Date: 20081022
  Transmission Date: 20090506
  Serious: Yes (Death)
  Sender: FDA-Public Use
  Company Number: US-PURDUE-USA_2008_0035592

PATIENT

DRUGS (1)
  1. OXYCONTIN [Suspect]
     Indication: DRUG ABUSE

REACTIONS (1)
  - DEATH [None]
